FAERS Safety Report 24982892 (Version 1)
Quarter: 2025Q1

REPORT INFORMATION
  Report Type: Spontaneous
  Country: US (occurrence: US)
  Receive Date: 20250218
  Receipt Date: 20250218
  Transmission Date: 20250409
  Serious: Yes (Hospitalization)
  Sender: ELI LILLY AND COMPANY
  Company Number: US-ELI_LILLY_AND_COMPANY-US202502009360

PATIENT
  Age: 35 Year
  Sex: Female

DRUGS (2)
  1. ZEPBOUND [Suspect]
     Active Substance: TIRZEPATIDE
     Indication: Weight control
     Route: 065
     Dates: start: 20250106
  2. FAMOTIDINE [Concomitant]
     Active Substance: FAMOTIDINE
     Indication: Gastrointestinal disorder

REACTIONS (8)
  - Chest pain [Not Recovered/Not Resolved]
  - Depression [Not Recovered/Not Resolved]
  - Anxiety [Not Recovered/Not Resolved]
  - Influenza like illness [Recovered/Resolved]
  - Neck pain [Recovered/Resolved]
  - Back pain [Recovered/Resolved]
  - Pain in extremity [Recovered/Resolved]
  - Miliaria [Recovered/Resolved]

NARRATIVE: CASE EVENT DATE: 20250201
